FAERS Safety Report 8792054 (Version 1)
Quarter: 2012Q4

REPORT INFORMATION
  Report Type: Report from Study
  Country: US (occurrence: US)
  Receive Date: 20120918
  Receipt Date: 20120918
  Transmission Date: 20130627
  Serious: Yes (Hospitalization)
  Sender: FDA-Public Use
  Company Number: US-ABBOTT-12P-163-0978022-00

PATIENT
  Sex: Male

DRUGS (1)
  1. HUMIRA [Suspect]
     Indication: PSORIASIS
     Dates: start: 2009, end: 201110

REACTIONS (3)
  - Vision blurred [Recovered/Resolved]
  - Hypoaesthesia [Recovered/Resolved]
  - Meningitis viral [Recovered/Resolved]
